FAERS Safety Report 6348361-0 (Version None)
Quarter: 2009Q3

REPORT INFORMATION
  Report Type: 
  Country: None (occurrence: None)
  Receive Date: 20090908
  Receipt Date: 20090820
  Transmission Date: 20100115
  Serious: Yes (Hospitalization)
  Sender: FDA-Public Use
  Company Number: 2009AL002256

PATIENT
  Age: 72 Year
  Sex: Male

DRUGS (29)
  1. DIGOXIN [Suspect]
     Dosage: 0.125MG, DAILY, PO
     Route: 048
     Dates: start: 20010101, end: 20090421
  2. ASPIRIN [Concomitant]
  3. SOTALOL HYDROCHLORIDE [Concomitant]
  4. COZAAR [Concomitant]
  5. SPIRONOLACTONE [Concomitant]
  6. FUROSEMIDE [Concomitant]
  7. SIMVASTATIN [Concomitant]
  8. WARFARIN [Concomitant]
  9. PRAVACHOL [Concomitant]
  10. COREG [Concomitant]
  11. LOSARTAN [Concomitant]
  12. ORETIC [Concomitant]
  13. NITRO-BID [Concomitant]
  14. KEFLEX [Concomitant]
  15. FLOMAX [Concomitant]
  16. COUMADIN [Concomitant]
  17. CIPRO [Concomitant]
  18. PROCTOSOL [Concomitant]
  19. PROTONIX [Concomitant]
  20. MIRTAZAPINK [Concomitant]
  21. MIRALAX [Concomitant]
  22. RISPERDAL [Concomitant]
  23. SEROQUEL [Concomitant]
  24. LORAZEPAM [Concomitant]
  25. ZOLPIDEM [Concomitant]
  26. HALOPERIDOL [Concomitant]
  27. AVAPRO [Concomitant]
  28. NITROGLYCERIN [Concomitant]
  29. REMERON [Concomitant]

REACTIONS (38)
  - AGITATION [None]
  - ANGINA PECTORIS [None]
  - ARTERIOSCLEROSIS [None]
  - ARTERIOSCLEROSIS CORONARY ARTERY [None]
  - ASTHENIA [None]
  - BREATH SOUNDS ABNORMAL [None]
  - CARDIAC FAILURE CONGESTIVE [None]
  - CARDIAC MURMUR [None]
  - CARDIOMEGALY [None]
  - CARDIOMYOPATHY [None]
  - CHEST DISCOMFORT [None]
  - CHOLELITHIASIS [None]
  - CORONARY ARTERY DISEASE [None]
  - COUGH [None]
  - DEPRESSION [None]
  - DISORIENTATION [None]
  - DIZZINESS [None]
  - DYSPNOEA [None]
  - ECONOMIC PROBLEM [None]
  - GASTROINTESTINAL HAEMORRHAGE [None]
  - HYPERLIPIDAEMIA [None]
  - HYPERTENSION [None]
  - HYPOAESTHESIA [None]
  - INJURY [None]
  - NERVOUSNESS [None]
  - ORTHOPNOEA [None]
  - PAIN IN EXTREMITY [None]
  - PLEURAL EFFUSION [None]
  - RENAL CYST [None]
  - RENAL FAILURE [None]
  - SCHIZOPHRENIA, PARANOID TYPE [None]
  - SPINAL OSTEOARTHRITIS [None]
  - SURGERY [None]
  - SWELLING [None]
  - TRANSIENT ISCHAEMIC ATTACK [None]
  - VARICOSE VEIN [None]
  - VENTRICULAR TACHYCARDIA [None]
  - WEIGHT DECREASED [None]
